FAERS Safety Report 7491725-2 (Version None)
Quarter: 2011Q2

REPORT INFORMATION
  Report Type: 
  Country: None (occurrence: None)
  Receive Date: 20110519
  Receipt Date: 20110509
  Transmission Date: 20111010
  Serious: Yes (Other)
  Sender: FDA-Public Use
  Company Number: JP-BAYER-201012885BYL

PATIENT
  Age: 62 Year
  Sex: Male
  Weight: 53 kg

DRUGS (10)
  1. NEXAVAR [Suspect]
     Dosage: 400 MG (DAILY DOSE), , ORAL
     Route: 048
     Dates: start: 20090421, end: 20090614
  2. MAGMITT [Concomitant]
     Dosage: 750 MG (DAILY DOSE), , ORAL
     Route: 048
     Dates: start: 20090408
  3. NEXAVAR [Suspect]
     Indication: RENAL CELL CARCINOMA
     Dosage: 800 MG (DAILY DOSE), , ORAL
     Route: 048
     Dates: start: 20090408, end: 20090420
  4. NEXAVAR [Suspect]
     Dosage: 400 MG (DAILY DOSE), , ORAL
     Route: 048
     Dates: start: 20091110, end: 20100111
  5. ASPIRIN [Concomitant]
     Dosage: 100 MG (DAILY DOSE), , ORAL
     Route: 048
     Dates: start: 20090408
  6. NOVORAPID [Concomitant]
     Dosage: 18 U (DAILY DOSE), , SUBCUTANEOUS
     Route: 058
     Dates: start: 20090408
  7. NEXAVAR [Suspect]
     Dosage: 800 MG (DAILY DOSE), , ORAL
     Route: 048
     Dates: start: 20100112
  8. AZUNOL [Concomitant]
     Indication: PROPHYLAXIS
     Dosage: UNK UNK, QS
     Route: 061
     Dates: start: 20090408
  9. ITOROL [Concomitant]
     Dosage: 40 MG (DAILY DOSE), , ORAL
     Route: 048
     Dates: start: 20090408
  10. NEXAVAR [Suspect]
     Dosage: 800 MG (DAILY DOSE), , ORAL
     Route: 048
     Dates: start: 20090615, end: 20091109

REACTIONS (3)
  - HEPATIC FUNCTION ABNORMAL [None]
  - PALMAR-PLANTAR ERYTHRODYSAESTHESIA SYNDROME [None]
  - DIARRHOEA [None]
